FAERS Safety Report 19702648 (Version 2)
Quarter: 2021Q4

REPORT INFORMATION
  Report Type: Report from Study
  Country: US (occurrence: US)
  Receive Date: 20210815
  Receipt Date: 20211006
  Transmission Date: 20220304
  Serious: Yes (Hospitalization)
  Sender: FDA-Public Use
  Company Number: US-BAXTER-2021BAX024855

PATIENT
  Sex: Male
  Weight: 120.2 kg

DRUGS (31)
  1. DOXIL [Suspect]
     Active Substance: DOXORUBICIN HYDROCHLORIDE
     Indication: B precursor type acute leukaemia
     Dosage: COURSE I
     Route: 065
     Dates: start: 20200717
  2. DOXIL [Suspect]
     Active Substance: DOXORUBICIN HYDROCHLORIDE
     Dosage: COURSE II AND III
     Route: 065
  3. DOXIL [Suspect]
     Active Substance: DOXORUBICIN HYDROCHLORIDE
     Dosage: COURSE IV, TOTAL DOSE ADMINISTERED THIS COURSE 177.6 MG
     Route: 065
     Dates: start: 20210415
  4. DOXIL [Suspect]
     Active Substance: DOXORUBICIN HYDROCHLORIDE
     Dosage: LAST ADMINISTERED DATE
     Route: 065
     Dates: start: 20210429
  5. CYCLOPHOSPHAMIDE [Suspect]
     Active Substance: CYCLOPHOSPHAMIDE
     Indication: B precursor type acute leukaemia
     Dosage: COURSE I
     Route: 065
     Dates: start: 20200717
  6. CYCLOPHOSPHAMIDE [Suspect]
     Active Substance: CYCLOPHOSPHAMIDE
     Dosage: COURSE II AND III
     Route: 065
  7. CYCLOPHOSPHAMIDE [Suspect]
     Active Substance: CYCLOPHOSPHAMIDE
     Dosage: COURSE IV, TOTAL DOSE ADMINISTERED THIS COURSE 2370 MG, LAST ADMINISTERED DATE: 28JUN2021
     Route: 065
     Dates: start: 20210628, end: 20210628
  8. THIOGUANINE [Suspect]
     Active Substance: THIOGUANINE
     Indication: B precursor type acute leukaemia
     Dosage: COURSE I
     Route: 065
     Dates: start: 20200717
  9. THIOGUANINE [Suspect]
     Active Substance: THIOGUANINE
     Dosage: COURSE II AND III
     Route: 065
  10. THIOGUANINE [Suspect]
     Active Substance: THIOGUANINE
     Dosage: COURSE IV, TOTAL DOSE ADMINISTERED THIS COURSE 2000 MG
     Route: 065
     Dates: start: 20210628
  11. THIOGUANINE [Suspect]
     Active Substance: THIOGUANINE
     Dosage: LAST ADMINISTERED DATE
     Route: 065
     Dates: start: 20210711
  12. METHOTREXATE SODIUM [Suspect]
     Active Substance: METHOTREXATE SODIUM
     Indication: B precursor type acute leukaemia
     Dosage: COURSE I
     Route: 065
     Dates: start: 20200717
  13. METHOTREXATE SODIUM [Suspect]
     Active Substance: METHOTREXATE SODIUM
     Dosage: COURSE II AND III
     Route: 065
  14. METHOTREXATE SODIUM [Suspect]
     Active Substance: METHOTREXATE SODIUM
     Dosage: COURSE IV, TOTAL DOSE ADMINISTERED THIS COURSE 45 MG
     Route: 065
     Dates: start: 20210415
  15. METHOTREXATE SODIUM [Suspect]
     Active Substance: METHOTREXATE SODIUM
     Dosage: LAST ADMINISTERED DATE
     Route: 065
     Dates: start: 20210706
  16. RITUXIMAB [Suspect]
     Active Substance: RITUXIMAB
     Indication: B precursor type acute leukaemia
     Dosage: COURSE I
     Route: 065
     Dates: start: 20200717
  17. RITUXIMAB [Suspect]
     Active Substance: RITUXIMAB
     Dosage: COURSE II AND III
     Route: 065
  18. RITUXIMAB [Suspect]
     Active Substance: RITUXIMAB
     Dosage: COURSE IV, TOTAL DOSE ADMINISTERED THIS COURSE 1778 MG
     Route: 065
     Dates: start: 20210415
  19. RITUXIMAB [Suspect]
     Active Substance: RITUXIMAB
     Dosage: LAST ADMINISTERED DATE
     Route: 065
     Dates: start: 20210422
  20. VINCRISTINE SULFATE [Suspect]
     Active Substance: VINCRISTINE SULFATE
     Indication: B precursor type acute leukaemia
     Dosage: COURSE I
     Route: 065
     Dates: start: 20200717
  21. VINCRISTINE SULFATE [Suspect]
     Active Substance: VINCRISTINE SULFATE
     Dosage: COURSE II AND III
     Route: 065
  22. VINCRISTINE SULFATE [Suspect]
     Active Substance: VINCRISTINE SULFATE
     Dosage: COURSE IV, TOTAL DOSE ADMINISTERED THIS COURSE 10 MG
     Route: 065
     Dates: start: 20210415
  23. VINCRISTINE SULFATE [Suspect]
     Active Substance: VINCRISTINE SULFATE
     Dosage: LAST ADMINISTERED DATE
     Route: 065
     Dates: start: 20210719
  24. CYTARABINE [Suspect]
     Active Substance: CYTARABINE
     Indication: B precursor type acute leukaemia
     Dosage: COURSE I
     Route: 065
     Dates: start: 20200717
  25. CYTARABINE [Suspect]
     Active Substance: CYTARABINE
     Dosage: COURSE II AND III
     Route: 065
  26. CYTARABINE [Suspect]
     Active Substance: CYTARABINE
     Dosage: COURSE IV, TOTAL DOSE ADMINISTERED THIS COURSE 1424 MG
     Route: 065
     Dates: start: 20210628
  27. CYTARABINE [Suspect]
     Active Substance: CYTARABINE
     Dosage: LAST ADMINISTERED DATE
     Route: 065
     Dates: start: 20210709
  28. ONCASPAR [Suspect]
     Active Substance: PEGASPARGASE
     Indication: B precursor type acute leukaemia
     Dosage: COURSE I
     Route: 065
     Dates: start: 20200717
  29. ONCASPAR [Suspect]
     Active Substance: PEGASPARGASE
     Dosage: COURSE II AND III
     Route: 065
  30. ONCASPAR [Suspect]
     Active Substance: PEGASPARGASE
     Dosage: COURSE IV, DOSE ADMINISTERED THIS COURSE 7500 UNIT
     Route: 065
     Dates: start: 20210418
  31. ONCASPAR [Suspect]
     Active Substance: PEGASPARGASE
     Dosage: LAST ADMINISTERED DATE
     Route: 065
     Dates: start: 20210712

REACTIONS (1)
  - Febrile neutropenia [Recovering/Resolving]

NARRATIVE: CASE EVENT DATE: 20210720
